FAERS Safety Report 5115819-1 (Version None)
Quarter: 2006Q3

REPORT INFORMATION
  Report Type: 
  Country: None (occurrence: None)
  Receive Date: 20060927
  Receipt Date: 20060922
  Transmission Date: 20061208
  Serious: Yes (Hospitalization)
  Sender: FDA-Public Use
  Company Number: 2006SE05114

PATIENT
  Age: 70 Year
  Sex: Female

DRUGS (3)
  1. BLOPRESS [Suspect]
     Indication: HYPERTENSION
     Route: 048
     Dates: end: 20060601
  2. LIPITOR [Suspect]
     Route: 048
     Dates: end: 20060601
  3. SULFONAMIDES, UREA DERIVATIVES [Concomitant]
     Route: 048
     Dates: end: 20060601

REACTIONS (1)
  - RHABDOMYOLYSIS [None]
